FAERS Safety Report 10075519 (Version 3)
Quarter: 2014Q2

REPORT INFORMATION
  Report Type: Report from Study
  Country: CN (occurrence: CN)
  Receive Date: 20140414
  Receipt Date: 20140428
  Transmission Date: 20141212
  Serious: Yes (Hospitalization)
  Sender: FDA-Public Use
  Company Number: CN-ROCHE-1366594

PATIENT
  Age: 51 Year
  Sex: Female
  Weight: 72 kg

DRUGS (2)
  1. AVASTIN [Suspect]
     Indication: COLON CANCER METASTATIC
     Route: 042
     Dates: start: 20121102
  2. AVASTIN [Suspect]
     Route: 042
     Dates: start: 20121101

REACTIONS (5)
  - Intestinal obstruction [Not Recovered/Not Resolved]
  - Pelvic neoplasm [Unknown]
  - Retroperitoneal neoplasm [Unknown]
  - Pain [Unknown]
  - Hernia [Recovering/Resolving]
